FAERS Safety Report 7472404-4 (Version None)
Quarter: 2011Q2

REPORT INFORMATION
  Report Type: 
  Country: None (occurrence: None)
  Receive Date: 20110511
  Receipt Date: 20110425
  Transmission Date: 20111010
  Serious: No
  Sender: FDA-Public Use
  Company Number: US-B.I. PHARMACEUTICALS,INC./RIDGEFIELD-2011-BP-11692BP

PATIENT
  Age: 62 Year

DRUGS (1)
  1. PRADAXA [Suspect]

REACTIONS (2)
  - HEADACHE [None]
  - DIZZINESS [None]
